FAERS Safety Report 9199134 (Version 4)
Quarter: 2014Q3

REPORT INFORMATION
  Report Type: Spontaneous
  Country: US (occurrence: US)
  Receive Date: 20130329
  Receipt Date: 20140820
  Transmission Date: 20150326
  Serious: Yes (Hospitalization, Other)
  Sender: FDA-Public Use
  Company Number: US-009507513-1303USA012847

PATIENT
  Sex: Female

DRUGS (1)
  1. NUVARING [Suspect]
     Active Substance: ETHINYL ESTRADIOL\ETONOGESTREL
     Indication: CONTRACEPTION
     Dosage: 1 DF, IN 3 WKS, OUT ONE WK
     Route: 067
     Dates: start: 20081123, end: 201007

REACTIONS (5)
  - Iron deficiency [Unknown]
  - Pulmonary embolism [Unknown]
  - Costochondritis [Unknown]
  - Pulmonary hypertension [Unknown]
  - Thrombosis [Unknown]

NARRATIVE: CASE EVENT DATE: 201007
